FAERS Safety Report 5380270-6 (Version None)
Quarter: 2007Q3

REPORT INFORMATION
  Report Type: 
  Country: None (occurrence: None)
  Receive Date: 20070706
  Receipt Date: 20070627
  Transmission Date: 20080115
  Serious: Yes (Death)
  Sender: FDA-Public Use
  Company Number: GR-AMGEN-UK227821

PATIENT
  Age: 7 Year
  Sex: Female
  Weight: 25 kg

DRUGS (4)
  1. KINERET [Suspect]
     Indication: VASCULITIS
     Route: 058
     Dates: start: 20070414, end: 20070420
  2. PREZOLON [Concomitant]
     Route: 065
  3. CYCLOPHOSPHAMIDE [Concomitant]
     Route: 042
  4. METHYLPREDNISOLONE [Concomitant]
     Route: 042

REACTIONS (3)
  - HISTIOCYTOSIS HAEMATOPHAGIC [None]
  - IMMUNOSUPPRESSION [None]
  - PARVOVIRUS INFECTION [None]
